FAERS Safety Report 7565549-1 (Version None)
Quarter: 2011Q2

REPORT INFORMATION
  Report Type: 
  Country: None (occurrence: None)
  Receive Date: 20110615
  Receipt Date: 20110609
  Transmission Date: 20111010
  Serious: Yes (Other)
  Sender: FDA-Public Use
  Company Number: FR-1185525

PATIENT
  Age: 15 Month
  Sex: Female

DRUGS (1)
  1. ATROPINE SULFATE [Suspect]
     Dosage: 1 GTT QOD OD OPHTHALMIC
     Route: 047

REACTIONS (1)
  - AUTOIMMUNE HEPATITIS [None]
